FAERS Safety Report 21755571 (Version 1)
Quarter: 2022Q4

REPORT INFORMATION
  Report Type: Report from Study
  Country: PR (occurrence: PR)
  Receive Date: 20221220
  Receipt Date: 20221220
  Transmission Date: 20230113
  Serious: No
  Sender: FDA-Public Use
  Company Number: PR-ABBVIE-21K-131-3985465-00

PATIENT
  Sex: Male
  Weight: 82.6 kg

DRUGS (9)
  1. HUMIRA [Suspect]
     Active Substance: ADALIMUMAB
     Indication: Ankylosing spondylitis
     Route: 058
  2. HUMIRA [Suspect]
     Active Substance: ADALIMUMAB
     Indication: Uveitis
  3. HUMIRA [Suspect]
     Active Substance: ADALIMUMAB
     Indication: Ankylosing spondylitis
     Route: 058
     Dates: start: 2018, end: 2019
  4. HUMIRA [Suspect]
     Active Substance: ADALIMUMAB
     Indication: Uveitis
  5. TOZINAMERAN [Concomitant]
     Active Substance: TOZINAMERAN
     Indication: Breakthrough COVID-19
     Dosage: 1ST DOSE
     Route: 030
  6. TOZINAMERAN [Concomitant]
     Active Substance: TOZINAMERAN
     Indication: Breakthrough COVID-19
     Dosage: 2ND DOSE
     Route: 030
  7. TOZINAMERAN [Concomitant]
     Active Substance: TOZINAMERAN
     Indication: Breakthrough COVID-19
     Dosage: 3RD DOSE
     Route: 030
  8. ALBUTEROL [Concomitant]
     Active Substance: ALBUTEROL
     Indication: Asthma
     Dosage: AS NEEDED
     Route: 048
  9. ALBUTEROL [Concomitant]
     Active Substance: ALBUTEROL
     Indication: Asthma
     Route: 048
     Dates: start: 2017

REACTIONS (4)
  - Glaucoma [Recovering/Resolving]
  - Intentional product misuse [Unknown]
  - Back pain [Not Recovered/Not Resolved]
  - Unevaluable event [Not Recovered/Not Resolved]

NARRATIVE: CASE EVENT DATE: 20190101
